FAERS Safety Report 9066250 (Version 1)
Quarter: 2013Q1

REPORT INFORMATION
  Report Type: Spontaneous
  Country: SE (occurrence: SE)
  Receive Date: 20130214
  Receipt Date: 20130214
  Transmission Date: 20140127
  Serious: Yes (Death, Hospitalization)
  Sender: FDA-Public Use
  Company Number: SE-PFIZER INC-2013057237

PATIENT
  Age: 53 Year
  Sex: Male

DRUGS (1)
  1. SUTENT [Suspect]
     Dosage: 50 MG, 1X/DAY
     Route: 048
     Dates: start: 20120922, end: 20121022

REACTIONS (5)
  - Sepsis [Fatal]
  - Abscess [Unknown]
  - Pyrexia [Unknown]
  - C-reactive protein increased [Unknown]
  - Dyspnoea [Unknown]
